FAERS Safety Report 6489742-4 (Version None)
Quarter: 2009Q4

REPORT INFORMATION
  Report Type: 
  Country: None (occurrence: None)
  Receive Date: 20091207
  Receipt Date: 20091123
  Transmission Date: 20100525
  Serious: Yes (Death, Hospitalization)
  Sender: FDA-Public Use
  Company Number: 2009AC000250

PATIENT
  Age: 71 Year
  Sex: Female

DRUGS (36)
  1. DIGOXIN [Suspect]
     Dosage: 0.125 MG;QD;PO
     Route: 048
     Dates: start: 20070601
  2. PROTONIX [Concomitant]
  3. COREG [Concomitant]
  4. PROCARDIA [Concomitant]
  5. ALBUTEROL [Concomitant]
  6. OXYGEN [Concomitant]
  7. TORADOL [Concomitant]
  8. ALTACE [Concomitant]
  9. CORDARONE [Concomitant]
  10. XOPENEX [Concomitant]
  11. LASIX [Concomitant]
  12. COREG [Concomitant]
  13. POTASSIUM CHLORIDE [Concomitant]
  14. NEURONTIN [Concomitant]
  15. POTASSIUM CHLORIDE [Concomitant]
  16. NEURONTIN [Concomitant]
  17. LOVENOX [Concomitant]
  18. ASPIRIN [Concomitant]
  19. PROCARDIA XL [Concomitant]
  20. TPN [Concomitant]
  21. MORPHINE SULFATE [Concomitant]
  22. ATROPINE [Concomitant]
  23. LORAZEPAM [Concomitant]
  24. COMPAZINE [Concomitant]
  25. PHENOBARBITAL [Concomitant]
  26. ACETAMINOPHEN [Concomitant]
  27. LIBRIUM [Concomitant]
  28. HALOPERIDOL [Concomitant]
  29. L-HYOSCAMINE SULFATE [Concomitant]
  30. PROCARDIA [Concomitant]
  31. MEGACE [Concomitant]
  32. LEVAQUIN [Concomitant]
  33. AMBIEN [Concomitant]
  34. LORTAB [Concomitant]
  35. SENNA [Concomitant]
  36. VICODIN [Concomitant]

REACTIONS (40)
  - ABDOMINAL PAIN [None]
  - ABSCESS [None]
  - ASTHENIA [None]
  - BLINDNESS UNILATERAL [None]
  - CACHEXIA [None]
  - CARDIAC FAILURE CONGESTIVE [None]
  - CHEST PAIN [None]
  - CHRONIC OBSTRUCTIVE PULMONARY DISEASE [None]
  - COLITIS ISCHAEMIC [None]
  - CONDITION AGGRAVATED [None]
  - CONFUSIONAL STATE [None]
  - CONVULSION [None]
  - DECREASED APPETITE [None]
  - DEHYDRATION [None]
  - DIARRHOEA [None]
  - DYSPNOEA [None]
  - ECONOMIC PROBLEM [None]
  - EMPHYSEMA [None]
  - FAILURE TO THRIVE [None]
  - FALL [None]
  - FAMILY STRESS [None]
  - FATIGUE [None]
  - HEPATIC ENZYME ABNORMAL [None]
  - HYPERTENSION [None]
  - INTESTINAL DILATATION [None]
  - KLEBSIELLA INFECTION [None]
  - MACULAR DEGENERATION [None]
  - MALAISE [None]
  - MALNUTRITION [None]
  - MULTIPLE INJURIES [None]
  - MUSCULAR WEAKNESS [None]
  - NAUSEA [None]
  - OEDEMA PERIPHERAL [None]
  - PAIN [None]
  - PNEUMONIA [None]
  - RECTAL HAEMORRHAGE [None]
  - RENAL FAILURE [None]
  - SOCIAL PROBLEM [None]
  - THERAPEUTIC AGENT TOXICITY [None]
  - URINARY TRACT INFECTION BACTERIAL [None]
